FAERS Safety Report 10225958 (Version 1)
Quarter: 2014Q2

REPORT INFORMATION
  Report Type: Spontaneous
  Country: IT (occurrence: IT)
  Receive Date: 20140609
  Receipt Date: 20140609
  Transmission Date: 20141212
  Serious: Yes (Hospitalization)
  Sender: FDA-Public Use
  Company Number: IT-ACTAVIS-2013-25412

PATIENT
  Age: 89 Year
  Sex: Female
  Weight: 58 kg

DRUGS (6)
  1. CLOPIDOGREL (UNKNOWN) [Suspect]
     Indication: PROPHYLAXIS
     Route: 048
     Dates: start: 20130628, end: 20130711
  2. CARDIOASPIRIN 100 MG GASTRORESISTANT TABLET (BAYER SPA) (ATC B01AC06) [Suspect]
     Indication: PROPHYLAXIS
     Dates: start: 20130627, end: 20130711
  3. LASIX [Concomitant]
     Indication: PRODUCT USED FOR UNKNOWN INDICATION
     Route: 065
  4. KARVEA [Concomitant]
     Indication: PRODUCT USED FOR UNKNOWN INDICATION
     Route: 065
  5. RIFACOL [Concomitant]
     Indication: PRODUCT USED FOR UNKNOWN INDICATION
     Route: 065
  6. TAVOR [Concomitant]
     Indication: PRODUCT USED FOR UNKNOWN INDICATION
     Route: 065

REACTIONS (2)
  - Anaemia [Recovering/Resolving]
  - Gastrointestinal haemorrhage [Recovering/Resolving]
